FAERS Safety Report 6596477-6 (Version None)
Quarter: 2010Q1

REPORT INFORMATION
  Report Type: 
  Country: None (occurrence: None)
  Receive Date: 20100223
  Receipt Date: 20100216
  Transmission Date: 20100710
  Serious: Yes (Hospitalization, Other)
  Sender: FDA-Public Use
  Company Number: US-AMGEN-KDL389662

PATIENT
  Sex: Female
  Weight: 97.6 kg

DRUGS (10)
  1. PROCRIT [Suspect]
     Indication: ANAEMIA OF MALIGNANT DISEASE
     Route: 058
     Dates: start: 20091101, end: 20091201
  2. LEVOTHYROXINE SODIUM [Concomitant]
  3. SYMBICORT [Concomitant]
  4. GABAPENTIN [Concomitant]
  5. LORAZEPAM [Concomitant]
  6. FOLIC ACID [Concomitant]
  7. VITAMIN B-12 [Concomitant]
  8. MULTI-VITAMINS [Concomitant]
  9. SIMVASTATIN [Concomitant]
  10. RITUXIMAB [Concomitant]
     Dates: start: 20091228

REACTIONS (2)
  - APLASIA PURE RED CELL [None]
  - HOSPITALISATION [None]
